FAERS Safety Report 17414638 (Version 3)
Quarter: 2020Q1

REPORT INFORMATION
  Report Type: Spontaneous
  Country: BR (occurrence: BR)
  Receive Date: 20200213
  Receipt Date: 20200227
  Transmission Date: 20200409
  Serious: Yes (Other)
  Sender: FDA-Public Use
  Company Number: BR-009507513-2002BRA004000

PATIENT
  Age: 42 Year
  Sex: Female
  Weight: 86 kg

DRUGS (12)
  1. FAULDCARBO [Suspect]
     Active Substance: CARBOPLATIN
     Dosage: UNK
     Dates: start: 20200116
  2. KEYTRUDA [Suspect]
     Active Substance: PEMBROLIZUMAB
     Indication: INVASIVE DUCTAL BREAST CARCINOMA
     Dosage: 200 MILLIGRAM, Q3W (INTRAVENOUSLY, DILUTED IN 100 ML OF SALINE, 1 ADMINISTRATION EVERY 21 DAYS, 30 M
     Route: 042
     Dates: start: 20200103
  3. FAULDCARBO [Suspect]
     Active Substance: CARBOPLATIN
     Dosage: UNK
     Dates: start: 20200130
  4. FAULDCARBO [Suspect]
     Active Substance: CARBOPLATIN
     Indication: BREAST CANCER
     Dosage: DILUTED IN 500 ML OF 5% GLUCOSE SALINE, AUC 2, 1 HOUR INFUSION. INTRAVENOUSLY, D1 AND D8, CYCLES WIT
     Route: 042
     Dates: start: 20190912
  5. GEMCITABINE. [Suspect]
     Active Substance: GEMCITABINE
     Dosage: UNK
     Dates: start: 20200103
  6. GEMCITABINE. [Suspect]
     Active Substance: GEMCITABINE
     Dosage: UNK
     Dates: start: 20200130
  7. FAULDCARBO [Suspect]
     Active Substance: CARBOPLATIN
     Dosage: UNK
     Dates: start: 20200103
  8. GRANISETRON [Concomitant]
     Active Substance: GRANISETRON
     Dosage: 0.01 MG/KG
     Route: 042
  9. GEMCITABINE. [Suspect]
     Active Substance: GEMCITABINE
     Dosage: UNK
     Dates: start: 20200116
  10. DEXAMETHASONE. [Concomitant]
     Active Substance: DEXAMETHASONE
     Dosage: 12 MILLIGRAM
     Route: 042
  11. KEYTRUDA [Suspect]
     Active Substance: PEMBROLIZUMAB
     Dosage: 200 MILLIGRAM, Q3W (INTRAVENOUSLY, DILUTED IN 100 ML OF SALINE, 1 ADMINISTRATION EVERY 21 DAYS, 30 M
     Route: 042
     Dates: start: 20200130
  12. GEMCITABINE. [Suspect]
     Active Substance: GEMCITABINE
     Indication: BREAST CANCER
     Dosage: DILUTED IN 250 ML OF SALINE; 1000 MG/M2, 30 MINUTES INFUSION (INTRAVENOUSLY, D1 AND D8, CYCLES WITH
     Route: 042
     Dates: start: 20190912

REACTIONS (5)
  - Insomnia [Unknown]
  - Product use in unapproved indication [Unknown]
  - Neutropenia [Recovered/Resolved]
  - Leukopenia [Recovered/Resolved]
  - Depression [Unknown]

NARRATIVE: CASE EVENT DATE: 2020
